FAERS Safety Report 6689868-6 (Version None)
Quarter: 2010Q2

REPORT INFORMATION
  Report Type: 
  Country: None (occurrence: None)
  Receive Date: 20100412
  Receipt Date: 20100119
  Transmission Date: 20101027
  Serious: No
  Sender: FDA-Public Use
  Company Number: 1000011355

PATIENT
  Sex: Female

DRUGS (1)
  1. BYSTOLIC [Suspect]
     Dosage: ORAL
     Route: 048

REACTIONS (3)
  - ALOPECIA [None]
  - CLITORAL ENGORGEMENT [None]
  - UNEVALUABLE EVENT [None]
